FAERS Safety Report 6261664-3 (Version None)
Quarter: 2009Q3

REPORT INFORMATION
  Report Type: 
  Country: None (occurrence: None)
  Receive Date: 20090707
  Receipt Date: 20090707
  Transmission Date: 20100115
  Serious: Yes (Hospitalization)
  Sender: FDA-Public Use
  Company Number: None

PATIENT
  Age: 75 Year
  Sex: Male

DRUGS (1)
  1. HEPARIN [Suspect]
     Indication: DIALYSIS
     Dates: start: 20090418, end: 20090426

REACTIONS (1)
  - THROMBOCYTOPENIA [None]
